FAERS Safety Report 4343626-6 (Version None)
Quarter: 2004Q2

REPORT INFORMATION
  Report Type: 
  Country: None (occurrence: None)
  Receive Date: 20040419
  Receipt Date: 20040406
  Transmission Date: 20050107
  Serious: Yes (Other)
  Sender: FDA-Public Use
  Company Number: 2004024087

PATIENT
  Age: 35 Year

DRUGS (1)
  1. FLUCONAZOLE [Suspect]
     Indication: ILL-DEFINED DISORDER
     Dosage: 150 MG (DAILY), ORAL
     Route: 048
     Dates: start: 20030226

REACTIONS (1)
  - GRAND MAL CONVULSION [None]
